FAERS Safety Report 10640652 (Version 2)
Quarter: 2014Q4

REPORT INFORMATION
  Report Type: Spontaneous
  Country: JP (occurrence: JP)
  Receive Date: 20141209
  Receipt Date: 20141209
  Transmission Date: 20150529
  Serious: Yes (Death, Hospitalization, Other)
  Sender: FDA-Public Use
  Company Number: PHHY2010JP80211

PATIENT
  Age: 77 Year
  Sex: Female

DRUGS (2)
  1. GLIVEC [Suspect]
     Active Substance: IMATINIB MESYLATE
     Indication: GASTROINTESTINAL STROMAL TUMOUR
     Dosage: 400 MG, QD
     Route: 048
     Dates: start: 20100208
  2. GLIVEC [Suspect]
     Active Substance: IMATINIB MESYLATE
     Dosage: UNK
     Route: 065

REACTIONS (9)
  - Neutropenia [Recovered/Resolved]
  - Gastrointestinal stromal tumour [Fatal]
  - Ileus [Fatal]
  - Leukopenia [Unknown]
  - Altered state of consciousness [Fatal]
  - Metastases to peritoneum [Fatal]
  - Abdominal pain [Fatal]
  - Central nervous system lesion [Fatal]
  - Malignant neoplasm progression [Fatal]
